FAERS Safety Report 7561293-5 (Version None)
Quarter: 2011Q2

REPORT INFORMATION
  Report Type: 
  Country: None (occurrence: None)
  Receive Date: 20110621
  Receipt Date: 20101112
  Transmission Date: 20111010
  Serious: No
  Sender: FDA-Public Use
  Company Number: US-ASTRAZENECA-2010SE54136

PATIENT
  Sex: Female

DRUGS (7)
  1. PULMICORT FLEXHALER [Suspect]
     Indication: ASTHMA
     Dosage: 180 MCG, TWO TIMES A DAY
     Route: 055
     Dates: start: 20080101
  2. COMBIVENT [Concomitant]
     Dosage: AS REQUIRED
  3. CRESTOR [Concomitant]
  4. VITAMIN TAB [Concomitant]
  5. MINERAL TAB [Concomitant]
  6. SINGULAIR [Concomitant]
  7. HYDROCHLOROTHIAZIDE [Concomitant]

REACTIONS (2)
  - DRUG DOSE OMISSION [None]
  - DISCOMFORT [None]
